FAERS Safety Report 5564951-7 (Version None)
Quarter: 2007Q4

REPORT INFORMATION
  Report Type: 
  Country: None (occurrence: None)
  Receive Date: 20071218
  Receipt Date: 20071214
  Transmission Date: 20080405
  Serious: No
  Sender: FDA-Public Use
  Company Number: B0498898A

PATIENT
  Age: 70 Year
  Sex: Female

DRUGS (6)
  1. PAXIL [Suspect]
     Indication: DRUG USE FOR UNKNOWN INDICATION
     Dosage: 20MG PER DAY
     Route: 048
  2. NORVASC [Concomitant]
     Route: 048
  3. AMOBAN [Concomitant]
     Route: 048
  4. ALOSENN [Concomitant]
     Route: 048
  5. MYSLEE [Concomitant]
     Route: 048
  6. MEDEPOLIN [Concomitant]
     Route: 048

REACTIONS (2)
  - DYSKINESIA [None]
  - HEAD TITUBATION [None]
